FAERS Safety Report 6492870-0 (Version None)
Quarter: 2009Q4

REPORT INFORMATION
  Report Type: 
  Country: None (occurrence: None)
  Receive Date: 20091214
  Receipt Date: 20091207
  Transmission Date: 20100525
  Serious: Yes (Death, Hospitalization, Other)
  Sender: FDA-Public Use
  Company Number: CA-AMGEN-QUU378950

PATIENT
  Sex: Male

DRUGS (1)
  1. NEUPOGEN [Suspect]
     Indication: DRUG USE FOR UNKNOWN INDICATION
     Route: 058
     Dates: start: 20061201

REACTIONS (4)
  - HAEMORRHAGE [None]
  - HEPATIC HAEMORRHAGE [None]
  - SPLENIC RUPTURE [None]
  - WHITE BLOOD CELL COUNT INCREASED [None]
